FAERS Safety Report 26095675 (Version 2)
Quarter: 2025Q4

REPORT INFORMATION
  Report Type: Report from Study
  Country: CH (occurrence: None)
  Receive Date: 20251127
  Receipt Date: 20251203
  Transmission Date: 20260118
  Serious: Yes (Hospitalization, Other)
  Sender: CHIESI
  Company Number: CH-CHIESI-2025CHF08170

PATIENT
  Age: 75 Year
  Sex: Male
  Weight: 68 kg

DRUGS (3)
  1. CANGRELOR [Suspect]
     Active Substance: CANGRELOR
     Indication: Antiplatelet therapy
     Dosage: UNK UNK, CONTINUOUS
     Dates: start: 20251006, end: 20251009
  2. CANGRELOR [Suspect]
     Active Substance: CANGRELOR
     Dosage: 0.25 MICROGRAM/KILOGRAM
     Dates: start: 20251009, end: 20251009
  3. CANGRELOR [Suspect]
     Active Substance: CANGRELOR
     Dosage: UNK UNK, CONTINUOUS
     Dates: start: 20251009, end: 20251013

REACTIONS (2)
  - Post procedural haemorrhage [Recovered/Resolved]
  - Haemoglobin decreased [Recovered/Resolved]

NARRATIVE: CASE EVENT DATE: 20251009
